FAERS Safety Report 8684147 (Version 2)
Quarter: 2012Q4

REPORT INFORMATION
  Report Type: 
  Country: BE (occurrence: BE)
  Receive Date: 20120726
  Receipt Date: 20120822
  Transmission Date: 20130627
  Serious: Yes (Hospitalization)
  Sender: FDA-Public Use
  Company Number: BE-ELI_LILLY_AND_COMPANY-BE201204007801

PATIENT
  Age: 60 Year
  Sex: Female
  Weight: 60 kg

DRUGS (9)
  1. CYMBALTA [Suspect]
     Indication: MAJOR DEPRESSION
     Dosage: 60 mg, bid
     Route: 048
     Dates: start: 20120310, end: 20120419
  2. CYMBALTA [Suspect]
     Dosage: 60 mg, qd
     Dates: end: 20120419
  3. ELTHYRONE [Concomitant]
     Indication: HYPOTHYROIDISM
     Dosage: 50 ug, daily in morning
  4. ELTHYRONE [Concomitant]
     Dosage: 100 ug daily in the evening
  5. LAMOTRIGINE [Concomitant]
     Indication: TEMPERATURE REGULATION DISORDER
     Dosage: 100 mg, bid
     Route: 048
     Dates: start: 20120310
  6. SEROQUEL XR [Concomitant]
     Dosage: 300 mg BID at dinner
  7. SEROQUEL [Concomitant]
     Dosage: 200 mg daily in evening
  8. DEPAKIN CHRONO [Concomitant]
     Dosage: 300 mg bid
  9. TEMESTA [Concomitant]
     Dosage: 2.5 mg qid

REACTIONS (2)
  - Bipolar I disorder [Recovering/Resolving]
  - Pyrexia [Recovered/Resolved]
